FAERS Safety Report 8588191 (Version 5)
Quarter: 2012Q4

REPORT INFORMATION
  Report Type: 
  Country: GB (occurrence: GB)
  Receive Date: 20120531
  Receipt Date: 20121026
  Transmission Date: 20130627
  Serious: Yes (Life-Threatening, Hospitalization)
  Sender: FDA-Public Use
  Company Number: GB-ROCHE-1073281

PATIENT
  Age: 12 Year
  Sex: Male
  Weight: 43 kg

DRUGS (12)
  1. XOLAIR [Suspect]
     Indication: PRODUCT USED FOR UNKNOWN INDICATION
     Route: 058
     Dates: start: 20120508
  2. XOLAIR [Suspect]
     Route: 058
     Dates: start: 20120607
  3. XOLAIR [Suspect]
     Route: 058
     Dates: start: 20120705
  4. XOLAIR [Suspect]
     Route: 058
  5. SERETIDE [Concomitant]
  6. ATROVENT [Concomitant]
  7. SALBUTAMOL [Concomitant]
  8. NASONEX [Concomitant]
  9. SLO-PHYLLIN [Concomitant]
  10. PREDNISOLONE [Concomitant]
  11. CETIRIZINE [Concomitant]
  12. FEXOFENADINE [Concomitant]

REACTIONS (3)
  - Lower respiratory tract infection [Recovered/Resolved]
  - Dyspnoea [Recovered/Resolved]
  - Asthma [Recovered/Resolved]
